FAERS Safety Report 4506436-2 (Version None)
Quarter: 2004Q4

REPORT INFORMATION
  Report Type: 
  Country: None (occurrence: None)
  Receive Date: 20041117
  Receipt Date: 20041105
  Transmission Date: 20050328
  Serious: Yes (Life-Threatening)
  Sender: FDA-Public Use
  Company Number: 2004-BP-08306BP

PATIENT
  Age: 39 Year
  Sex: Male

DRUGS (1)
  1. VIRAMUNE [Suspect]
     Indication: HIV INFECTION
     Dosage: 400 MG (200 MG), PO
     Route: 048
     Dates: start: 20030825

REACTIONS (7)
  - DERMATITIS [None]
  - HEPATIC FAILURE [None]
  - HEPATITIS [None]
  - INFLAMMATION [None]
  - PURULENT DISCHARGE [None]
  - RASH PAPULAR [None]
  - STEVENS-JOHNSON SYNDROME [None]
